FAERS Safety Report 21094672 (Version 1)
Quarter: 2022Q3

REPORT INFORMATION
  Report Type: Spontaneous
  Country: None (occurrence: SE)
  Receive Date: 20220718
  Receipt Date: 20220718
  Transmission Date: 20221026
  Serious: Yes (Other)
  Sender: FDA-Public Use
  Company Number: SE-HILL DERMACEUTICALS, INC.-2130971

PATIENT
  Age: 63 Year
  Sex: Female

DRUGS (1)
  1. TOLAK [Suspect]
     Active Substance: FLUOROURACIL
     Indication: Actinic keratosis
     Route: 065
     Dates: start: 20220105, end: 20220126

REACTIONS (8)
  - Erythema [Recovering/Resolving]
  - Paraesthesia [Recovering/Resolving]
  - Influenza like illness [Recovering/Resolving]
  - Eating disorder [Recovering/Resolving]
  - Blister [Recovering/Resolving]
  - Pruritus [Recovering/Resolving]
  - Headache [Not Recovered/Not Resolved]
  - Skin burning sensation [Recovering/Resolving]
